FAERS Safety Report 5701003-7 (Version None)
Quarter: 2008Q2

REPORT INFORMATION
  Report Type: 
  Country: None (occurrence: None)
  Receive Date: 20080410
  Receipt Date: 20080403
  Transmission Date: 20081010
  Serious: Yes (Hospitalization, Other)
  Sender: FDA-Public Use
  Company Number: US-ASTRAZENECA-2006UW11423

PATIENT
  Age: 17012 Day
  Sex: Male
  Weight: 98.6 kg

DRUGS (13)
  1. SEROQUEL [Suspect]
     Indication: SCHIZOPHRENIA
     Route: 048
     Dates: start: 20041001, end: 20060301
  2. SEROQUEL [Suspect]
     Indication: DEPRESSION
     Route: 048
     Dates: start: 20041001, end: 20060301
  3. SEROQUEL [Suspect]
     Indication: BIPOLAR DISORDER
     Route: 048
     Dates: start: 20041001, end: 20060301
  4. GEODON [Concomitant]
  5. HALDOL [Concomitant]
  6. NAVANE [Concomitant]
  7. RISPERDAL [Concomitant]
  8. THORAZINE [Concomitant]
  9. XANAX [Concomitant]
  10. DEPAKOTE [Concomitant]
  11. LORAZEPAM [Concomitant]
  12. TRAZODONE HCL [Concomitant]
  13. THIORIDAZINE [Concomitant]

REACTIONS (4)
  - DELIRIUM [None]
  - DIABETES MELLITUS [None]
  - DIABETIC COMA [None]
  - LOSS OF CONSCIOUSNESS [None]
